FAERS Safety Report 23722997 (Version 2)
Quarter: 2024Q2

REPORT INFORMATION
  Report Type: Spontaneous
  Country: CA (occurrence: CA)
  Receive Date: 20240409
  Receipt Date: 20240430
  Transmission Date: 20240716
  Serious: Yes (Hospitalization, Other)
  Sender: FDA-Public Use
  Company Number: CA-SANDOZ-SDZ2024CA037184

PATIENT
  Age: 67 Year
  Sex: Male

DRUGS (13)
  1. CEFAZOLIN [Suspect]
     Active Substance: CEFAZOLIN
     Indication: Antibiotic prophylaxis
     Dosage: UNK
     Route: 042
  2. CEFTRIAXONE [Suspect]
     Active Substance: CEFTRIAXONE\CEFTRIAXONE SODIUM
     Indication: Evidence based treatment
     Dosage: 1 G, QD
     Route: 042
  3. MEROPENEM [Suspect]
     Active Substance: MEROPENEM
     Indication: Clostridium difficile infection
     Dosage: UNK
     Route: 042
  4. MEROPENEM [Suspect]
     Active Substance: MEROPENEM
     Indication: Bacteraemia
  5. PIPERACILLIN SODIUM\TAZOBACTAM SODIUM [Suspect]
     Active Substance: PIPERACILLIN SODIUM\TAZOBACTAM SODIUM
     Dosage: 3.375 G, 3 EVERY 1 DAYS
     Route: 042
  6. PIPERACILLIN SODIUM\TAZOBACTAM SODIUM [Suspect]
     Active Substance: PIPERACILLIN SODIUM\TAZOBACTAM SODIUM
     Indication: Clostridium difficile infection
     Dosage: 3.375 G
     Route: 042
  7. VANCOMYCIN [Suspect]
     Active Substance: VANCOMYCIN
     Dosage: 1 G
     Route: 042
  8. VANCOMYCIN [Suspect]
     Active Substance: VANCOMYCIN
     Dosage: 125 MG
     Route: 065
  9. VANCOMYCIN [Suspect]
     Active Substance: VANCOMYCIN
     Indication: Clostridium difficile infection
     Dosage: 500 MG
     Route: 048
  10. CEFAZOLIN SODIUM [Concomitant]
     Active Substance: CEFAZOLIN SODIUM
     Indication: Prophylaxis
     Dosage: UNK
     Route: 042
  11. CEFTRIAXONE SODIUM [Concomitant]
     Active Substance: CEFTRIAXONE SODIUM
     Indication: Evidence based treatment
     Dosage: 1 G
     Route: 042
  12. METRONIDAZOLE [Concomitant]
     Active Substance: METRONIDAZOLE
     Indication: Evidence based treatment
     Dosage: 500 MG
     Route: 042
  13. METRONIDAZOLE [Concomitant]
     Active Substance: METRONIDAZOLE
     Dosage: 500 MG
     Route: 042

REACTIONS (3)
  - Condition aggravated [Recovered/Resolved]
  - Bacteraemia [Recovering/Resolving]
  - Clostridium difficile infection [Recovering/Resolving]
